APPROVED DRUG PRODUCT: NALMEFENE HYDROCHLORIDE
Active Ingredient: NALMEFENE HYDROCHLORIDE
Strength: EQ 2MG BASE/2ML (EQ 1MG BASE/ML)
Dosage Form/Route: SOLUTION;INTRAMUSCULAR, INTRAVENOUS, SUBCUTANEOUS
Application: A216007 | Product #002 | TE Code: AP
Applicant: CHENGDU SHUODE PHARMACEUTICAL CO LTD
Approved: Nov 15, 2023 | RLD: No | RS: No | Type: RX